FAERS Safety Report 4286449-9 (Version None)
Quarter: 2004Q1

REPORT INFORMATION
  Report Type: 
  Country: None (occurrence: None)
  Receive Date: 20040204
  Receipt Date: 20040122
  Transmission Date: 20041129
  Serious: Yes (Disabling)
  Sender: FDA-Public Use
  Company Number: 2004004866

PATIENT
  Age: 66 Year
  Sex: Male

DRUGS (5)
  1. ATORVASTATIN CALCIUM [Suspect]
     Indication: HYPERCHOLESTEROLAEMIA
     Dosage: DAILY; ORAL
     Route: 048
     Dates: start: 20000401
  2. PRAVASTATIN [Concomitant]
  3. AMLODIPINE [Concomitant]
  4. ASPIRIN TAB [Concomitant]
  5. BENDROFLUMETHIAZIDE [Concomitant]

REACTIONS (4)
  - HYPOAESTHESIA [None]
  - JOINT RANGE OF MOTION DECREASED [None]
  - NERVE COMPRESSION [None]
  - NEUROPATHY PERIPHERAL [None]
